FAERS Safety Report 21814246 (Version 1)
Quarter: 2023Q1

REPORT INFORMATION
  Report Type: Spontaneous
  Country: US (occurrence: US)
  Receive Date: 20230104
  Receipt Date: 20230104
  Transmission Date: 20230418
  Serious: Yes (Other)
  Sender: FDA-Public Use
  Company Number: US-NOVOPROD-1007318

PATIENT
  Age: 6 Week
  Sex: Female

DRUGS (1)
  1. NORDITROPIN [Suspect]
     Active Substance: SOMATROPIN
     Indication: Noonan syndrome
     Dosage: 3 MG, QD
     Route: 058
     Dates: end: 202212

REACTIONS (9)
  - Heart transplant [Recovered/Resolved]
  - Pneumothorax [Recovered/Resolved]
  - Scoliosis [Unknown]
  - Attention deficit hyperactivity disorder [Unknown]
  - Tooth disorder [Unknown]
  - Urinary tract disorder [Unknown]
  - Multiple allergies [Unknown]
  - Hypoacusis [Recovered/Resolved]
  - Eye disorder [Unknown]

NARRATIVE: CASE EVENT DATE: 20050701
